FAERS Safety Report 7820527-X (Version None)
Quarter: 2011Q4

REPORT INFORMATION
  Report Type: 
  Country: None (occurrence: None)
  Receive Date: 20111018
  Receipt Date: 20111011
  Transmission Date: 20120403
  Serious: Yes (Other)
  Sender: FDA-Public Use
  Company Number: PHHY2011BR91100

PATIENT
  Age: 18 Year
  Sex: Female

DRUGS (6)
  1. TRILEPTAL [Suspect]
     Dosage: 1 DF, TID
  2. MEPERIDON [Concomitant]
  3. RISPERIDONE [Concomitant]
  4. TRILEPTAL [Suspect]
     Indication: CONVULSION
     Dosage: 1.5 DF, BID
  5. NESPAM [Concomitant]
  6. TRILEPTAL [Suspect]
     Dosage: 1 DF, BID

REACTIONS (2)
  - SCHIZOPHRENIA [None]
  - AGGRESSION [None]
